FAERS Safety Report 8099385-7 (Version None)
Quarter: 2012Q1

REPORT INFORMATION
  Report Type: 
  Country: None (occurrence: None)
  Receive Date: 20120129
  Receipt Date: 20110915
  Transmission Date: 20120608
  Serious: No
  Sender: FDA-Public Use
  Company Number: US-ABBOTT-11P-163-0855151-00

PATIENT
  Sex: Female
  Weight: 60.382 kg

DRUGS (2)
  1. HUMIRA [Suspect]
     Route: 058
     Dates: start: 20110824
  2. HUMIRA [Suspect]
     Indication: PSORIASIS
     Dosage: ONCE
     Route: 058
     Dates: start: 20110810, end: 20110810

REACTIONS (1)
  - NAUSEA [None]
